FAERS Safety Report 14426356 (Version 1)
Quarter: 2018Q1

REPORT INFORMATION
  Report Type: Spontaneous
  Country: US (occurrence: US)
  Receive Date: 20180123
  Receipt Date: 20180123
  Transmission Date: 20180509
  Serious: No
  Sender: FDA-Public Use
  Company Number: US-ROCHE-2014382

PATIENT
  Sex: Female

DRUGS (1)
  1. OCREVUS [Suspect]
     Active Substance: OCRELIZUMAB
     Indication: RELAPSING-REMITTING MULTIPLE SCLEROSIS
     Route: 042
     Dates: start: 20170526

REACTIONS (5)
  - Neuropathy peripheral [Recovering/Resolving]
  - Grip strength decreased [Recovering/Resolving]
  - Weight decreased [Recovering/Resolving]
  - Gait disturbance [Recovering/Resolving]
  - Muscle spasms [Recovering/Resolving]
